FAERS Safety Report 5964712-0 (Version None)
Quarter: 2008Q4

REPORT INFORMATION
  Report Type: 
  Country: None (occurrence: None)
  Receive Date: 20081125
  Receipt Date: 20081015
  Transmission Date: 20090506
  Serious: No
  Sender: FDA-Public Use
  Company Number: US-AMGEN-KDL311222

PATIENT
  Sex: Female

DRUGS (4)
  1. ENBREL [Suspect]
     Indication: PSORIATIC ARTHROPATHY
     Route: 058
     Dates: end: 20080901
  2. METHOTREXATE [Concomitant]
     Route: 048
  3. NAPROXEN [Concomitant]
  4. PREDNISONE TAB [Concomitant]

REACTIONS (11)
  - BLOOD PRESSURE INCREASED [None]
  - CONTUSION [None]
  - DRY MOUTH [None]
  - EAR CONGESTION [None]
  - ERYTHEMA [None]
  - INJECTION SITE PAIN [None]
  - NASOPHARYNGITIS [None]
  - OROPHARYNGEAL PAIN [None]
  - PRURITUS [None]
  - SCRATCH [None]
  - SKIN MASS [None]
